FAERS Safety Report 9219321 (Version 2)
Quarter: 2013Q2

REPORT INFORMATION
  Report Type: Spontaneous
  Country: US (occurrence: US)
  Receive Date: 20130409
  Receipt Date: 20130429
  Transmission Date: 20140414
  Serious: Yes (Death, Hospitalization)
  Sender: FDA-Public Use
  Company Number: US-PFIZER INC-2013108221

PATIENT
  Sex: Male

DRUGS (1)
  1. INLYTA [Suspect]
     Indication: RENAL CANCER METASTATIC
     Dosage: 5 MG, 2X/DAY (Q12H)
     Route: 048
     Dates: start: 20121107, end: 20121210

REACTIONS (3)
  - Death [Fatal]
  - Fatigue [Unknown]
  - Dyspnoea [Unknown]
